FAERS Safety Report 5014343-4 (Version None)
Quarter: 2006Q2

REPORT INFORMATION
  Report Type: 
  Country: None (occurrence: None)
  Receive Date: 20060411
  Receipt Date: 20041220
  Transmission Date: 20061013
  Serious: No
  Sender: FDA-Public Use
  Company Number: A03200600868

PATIENT
  Age: 76 Year
  Sex: Male

DRUGS (1)
  1. UROXATRAL [Suspect]
     Indication: BENIGN PROSTATIC HYPERPLASIA
     Dosage: ORAL
     Route: 048
     Dates: start: 20041001

REACTIONS (1)
  - GYNAECOMASTIA [None]
